FAERS Safety Report 19960871 (Version 1)
Quarter: 2021Q4

REPORT INFORMATION
  Report Type: Spontaneous
  Country: FR (occurrence: FR)
  Receive Date: 20211016
  Receipt Date: 20211016
  Transmission Date: 20220304
  Serious: Yes (Life-Threatening)
  Sender: FDA-Public Use
  Company Number: None

PATIENT
  Age: 39 Year
  Sex: Male
  Weight: 60 kg

DRUGS (1)
  1. SAIZEN [Suspect]
     Active Substance: SOMATROPIN
     Indication: Growth retardation
     Route: 058
     Dates: start: 19941005, end: 199906

REACTIONS (2)
  - Testicular cancer metastatic [Not Recovered/Not Resolved]
  - Testicular germ cell tumour [Not Recovered/Not Resolved]

NARRATIVE: CASE EVENT DATE: 20200101
